FAERS Safety Report 7383148-1 (Version None)
Quarter: 2011Q1

REPORT INFORMATION
  Report Type: 
  Country: None (occurrence: None)
  Receive Date: 20110325
  Receipt Date: 20110325
  Transmission Date: 20110831
  Serious: No
  Sender: FDA-Public Use
  Company Number: None

PATIENT
  Sex: Male
  Weight: 68.0396 kg

DRUGS (1)
  1. GENERIC LAMISIL [Suspect]
     Indication: BODY TINEA
     Dosage: 250MG ONE PO QD PO 2 YEARS AGO
     Route: 048

REACTIONS (1)
  - DRUG INEFFECTIVE [None]
